FAERS Safety Report 10399264 (Version 3)
Quarter: 2014Q4

REPORT INFORMATION
  Report Type: Report from Study
  Country: US (occurrence: US)
  Receive Date: 20140821
  Receipt Date: 20141118
  Transmission Date: 20150528
  Serious: Yes (Hospitalization)
  Sender: FDA-Public Use
  Company Number: US-ACTELION-A-NJ2014-103799

PATIENT
  Age: 43 Year
  Sex: Female

DRUGS (2)
  1. TRACLEER [Suspect]
     Active Substance: BOSENTAN\BOSENTAN MONOHYDRATE
     Indication: COR PULMONALE CHRONIC
     Dosage: UNK
     Route: 048
  2. ADCIRCA [Concomitant]
     Active Substance: TADALAFIL

REACTIONS (4)
  - Disorientation [Unknown]
  - Carbon monoxide poisoning [Unknown]
  - Pyrexia [Unknown]
  - Carbon dioxide increased [Unknown]

NARRATIVE: CASE EVENT DATE: 20140912
